FAERS Safety Report 5050366-7 (Version None)
Quarter: 2006Q3

REPORT INFORMATION
  Report Type: 
  Country: None (occurrence: None)
  Receive Date: 20060707
  Receipt Date: 20060621
  Transmission Date: 20061208
  Serious: Yes (Other)
  Sender: FDA-Public Use
  Company Number: DSA_28369_2006

PATIENT
  Age: 33 Year
  Sex: Female

DRUGS (5)
  1. TRAMADOL HCL [Suspect]
     Indication: FIBROMYALGIA
     Dosage: 50 MG Q8HR/A FEW WEEKS
  2. TRAMADOL HCL [Suspect]
     Indication: PAIN
     Dosage: 50 MG Q8HR/A FEW WEEKS
  3. PAROXETINE HCL [Concomitant]
  4. ACETAMINOPHEN [Concomitant]
  5. IMIPRAMINE [Concomitant]

REACTIONS (6)
  - ALVEOLITIS ALLERGIC [None]
  - HAEMANGIOMA OF LIVER [None]
  - INTERSTITIAL LUNG DISEASE [None]
  - LYMPHOHISTIOCYTOSIS [None]
  - NEPHROLITHIASIS [None]
  - PULMONARY GRANULOMA [None]
